FAERS Safety Report 11088161 (Version 1)
Quarter: 2015Q2

REPORT INFORMATION
  Report Type: Spontaneous
  Country: US (occurrence: None)
  Receive Date: 20150501
  Receipt Date: 20150501
  Transmission Date: 20150821
  Serious: No
  Sender: FDA-Public Use
  Company Number: None

PATIENT
  Age: 50 Year
  Sex: Female
  Weight: 89.81 kg

DRUGS (5)
  1. BENZTROPINE [Suspect]
     Active Substance: BENZTROPINE
     Indication: SCHIZOPHRENIA
     Dosage: STRENGTH:  50MG, QUANTITY: 2 PILLS A DAY, FREQUENCY: TWICE DAILY, ROUTE: ORALLY BY MOUTH
     Route: 048
  2. LEVOTHYROXINE [Concomitant]
     Active Substance: LEVOTHYROXINE
  3. IBUPROPHINE B COMPLEX [Concomitant]
  4. FLUPHENAZINE DECANOATE. [Suspect]
     Active Substance: FLUPHENAZINE DECANOATE
  5. TRAMALOL [Concomitant]

REACTIONS (1)
  - Muscle disorder [None]
